FAERS Safety Report 11305902 (Version 3)
Quarter: 2015Q3

REPORT INFORMATION
  Report Type: Spontaneous
  Country: US (occurrence: US)
  Receive Date: 20150723
  Receipt Date: 20150910
  Transmission Date: 20151125
  Serious: Yes (Hospitalization)
  Sender: FDA-Public Use
  Company Number: US-JNJFOC-20150716546

PATIENT
  Age: 65 Year
  Sex: Female
  Weight: 112 kg

DRUGS (10)
  1. ULORIC [Concomitant]
     Active Substance: FEBUXOSTAT
  2. GABAPENTIN. [Concomitant]
     Active Substance: GABAPENTIN
  3. PRISTIQ EXTENDED RELEASE [Concomitant]
     Active Substance: DESVENLAFAXINE SUCCINATE
  4. LORAZEPAM. [Concomitant]
     Active Substance: LORAZEPAM
  5. IMBRUVICA [Suspect]
     Active Substance: IBRUTINIB
     Indication: CHRONIC LYMPHOCYTIC LEUKAEMIA
     Route: 048
     Dates: start: 20140503, end: 20150608
  6. IMBRUVICA [Suspect]
     Active Substance: IBRUTINIB
     Indication: CHRONIC LYMPHOCYTIC LEUKAEMIA
     Route: 048
     Dates: start: 2015
  7. MAGNESIUM [Concomitant]
     Active Substance: MAGNESIUM
  8. DIPHENHYDRAMINE. [Concomitant]
     Active Substance: DIPHENHYDRAMINE
  9. VITAMIN B3 [Concomitant]
     Active Substance: NIACIN
  10. IBUPROFEN. [Concomitant]
     Active Substance: IBUPROFEN

REACTIONS (1)
  - Nephrolithiasis [Recovered/Resolved]

NARRATIVE: CASE EVENT DATE: 201505
